FAERS Safety Report 16120773 (Version 1)
Quarter: 2019Q1

REPORT INFORMATION
  Report Type: Report from Study
  Country: None (occurrence: US)
  Receive Date: 20190327
  Receipt Date: 20190327
  Transmission Date: 20190418
  Serious: Yes (Other)
  Sender: FDA-Public Use
  Company Number: US-ABBVIE-19K-163-2714287-00

PATIENT
  Age: 43 Year
  Sex: Female

DRUGS (1)
  1. HUMIRA [Suspect]
     Active Substance: ADALIMUMAB
     Indication: RHEUMATOID ARTHRITIS
     Route: 058

REACTIONS (16)
  - Diarrhoea haemorrhagic [Unknown]
  - Rheumatoid arthritis [Unknown]
  - Back injury [Unknown]
  - Faecal volume decreased [Unknown]
  - Sinusitis [Unknown]
  - Acquired oesophageal web [Unknown]
  - Feeling abnormal [Unknown]
  - Hepatic steatosis [Unknown]
  - Injection site pain [Unknown]
  - Device issue [Unknown]
  - Diarrhoea [Unknown]
  - Hiatus hernia [Unknown]
  - Joint injury [Unknown]
  - Contusion [Unknown]
  - Limb injury [Unknown]
  - Abdominal pain upper [Unknown]

NARRATIVE: CASE EVENT DATE: 20190303
